FAERS Safety Report 11511225 (Version 1)
Quarter: 2015Q3

REPORT INFORMATION
  Report Type: Spontaneous
  Country: US (occurrence: US)
  Receive Date: 20150915
  Receipt Date: 20150915
  Transmission Date: 20151125
  Serious: Yes (Other)
  Sender: FDA-Public Use
  Company Number: US-SA-2015SA137573

PATIENT
  Sex: Female

DRUGS (2)
  1. ALIROCUMAB PREFILLED PEN [Concomitant]
     Dates: start: 201508
  2. PRALUENT [Suspect]
     Active Substance: ALIROCUMAB
     Route: 065
     Dates: start: 201508

REACTIONS (2)
  - Vitreous floaters [Not Recovered/Not Resolved]
  - Chorioretinopathy [Recovering/Resolving]

NARRATIVE: CASE EVENT DATE: 201508
